FAERS Safety Report 21420290 (Version 1)
Quarter: 2022Q4

REPORT INFORMATION
  Report Type: Report from Study
  Country: RO (occurrence: RO)
  Receive Date: 20221007
  Receipt Date: 20221007
  Transmission Date: 20230113
  Serious: Yes (Hospitalization)
  Sender: FDA-Public Use
  Company Number: RO-ABBVIE-4142086

PATIENT
  Age: 45 Year
  Sex: Male

DRUGS (4)
  1. SKYRIZI [Suspect]
     Active Substance: RISANKIZUMAB-RZAA
     Indication: Psoriasis
     Route: 058
     Dates: start: 20210415
  2. TIANEPTINE SODIUM [Concomitant]
     Active Substance: TIANEPTINE SODIUM
     Indication: Epilepsy
     Dosage: 2 TABLET
     Route: 048
  3. VALPROATE SODIUM [Suspect]
     Active Substance: VALPROATE SODIUM
     Indication: Epilepsy
     Dosage: 2 TABLET, STARTED PRIOR TO SKYRIZI
     Route: 048
  4. PANCRELIPASE [Suspect]
     Active Substance: PANCRELIPASE
     Indication: Pancreatitis
     Dosage: 2 TABLET, STARTED PRIOR TO SKYRIZI
     Route: 048

REACTIONS (2)
  - Rib fracture [Not Recovered/Not Resolved]
  - Haemothorax [Recovered/Resolved]
